FAERS Safety Report 11279987 (Version 1)
Quarter: 2015Q3

REPORT INFORMATION
  Report Type: Spontaneous
  Country: US (occurrence: None)
  Receive Date: 20150716
  Receipt Date: 20150716
  Transmission Date: 20151125
  Serious: Yes (Disabling)
  Sender: FDA-Public Use
  Company Number: None

PATIENT
  Age: 58 Year
  Sex: Female
  Weight: 65.77 kg

DRUGS (18)
  1. CEPHALEXIN. [Concomitant]
     Active Substance: CEPHALEXIN
  2. DAILY VITAMIN [Concomitant]
     Active Substance: VITAMINS
  3. FIROICET [Concomitant]
  4. VALIUM [Concomitant]
     Active Substance: DIAZEPAM
  5. EXCEDRIN [Concomitant]
     Active Substance: ACETAMINOPHEN\ASPIRIN\CAFFEINE
  6. BENADRYL [Concomitant]
     Active Substance: DIPHENHYDRAMINE HYDROCHLORIDE
  7. LOVAZA [Concomitant]
     Active Substance: OMEGA-3-ACID ETHYL ESTERS
  8. PHENERGAN [Concomitant]
     Active Substance: PROMETHAZINE HYDROCHLORIDE
  9. HYDROCODON-ACETAMINOPHEN [Concomitant]
     Active Substance: ACETAMINOPHEN\HYDROCODONE
  10. ENSURE [Concomitant]
     Active Substance: AMINO ACIDS\DEXTROSE\ELECTROLYTES NOS\SOYBEAN OIL\VITAMINS
  11. GRALISE [Suspect]
     Active Substance: GABAPENTIN
     Indication: RHEUMATOID ARTHRITIS
     Dates: start: 20150714, end: 20150715
  12. AMBIEN [Concomitant]
     Active Substance: ZOLPIDEM TARTRATE
  13. ALKA SELTZER [Concomitant]
     Active Substance: ANHYDROUS CITRIC ACID\ASPIRIN\SODIUM BICARBONATE
  14. MAGNESEUM [Concomitant]
  15. PROBIOTIC [Concomitant]
     Active Substance: PROBIOTICS NOS
  16. GRALISE [Suspect]
     Active Substance: GABAPENTIN
     Indication: FIBROMYALGIA
     Dates: start: 20150714, end: 20150715
  17. SINGULAIR [Concomitant]
     Active Substance: MONTELUKAST SODIUM
  18. VITAMIN D [Concomitant]
     Active Substance: CHOLECALCIFEROL

REACTIONS (10)
  - Decreased activity [None]
  - Abasia [None]
  - Anxiety [None]
  - Chest discomfort [None]
  - Overdose [None]
  - Feeling drunk [None]
  - Mental impairment [None]
  - Urticaria [None]
  - Pruritus [None]
  - Dysarthria [None]

NARRATIVE: CASE EVENT DATE: 20150714
